FAERS Safety Report 7787310-5 (Version None)
Quarter: 2011Q3

REPORT INFORMATION
  Report Type: 
  Country: None (occurrence: None)
  Receive Date: 20110929
  Receipt Date: 20110920
  Transmission Date: 20111222
  Serious: Yes (Hospitalization, Other)
  Sender: FDA-Public Use
  Company Number: PHHY2011KR83778

PATIENT
  Age: 20 Year
  Sex: Female

DRUGS (2)
  1. ARIPIPRAZOLE [Suspect]
     Indication: PSYCHOTIC DISORDER
     Dosage: 10 MG/DAY
  2. RISPERIDONE [Suspect]
     Indication: PSYCHOTIC DISORDER
     Dosage: 4 MG/DAY

REACTIONS (18)
  - NEUROLEPTIC MALIGNANT SYNDROME [None]
  - APHAGIA [None]
  - STEREOTYPY [None]
  - COMPULSIVE LIP BITING [None]
  - TOOTH LOSS [None]
  - CATATONIA [None]
  - PYREXIA [None]
  - NEGATIVISM [None]
  - ATRIAL TACHYCARDIA [None]
  - MUTISM [None]
  - DYSTONIA [None]
  - OXYGEN SATURATION DECREASED [None]
  - MUSCLE RIGIDITY [None]
  - STUPOR [None]
  - BRUXISM [None]
  - UNRESPONSIVE TO STIMULI [None]
  - PSYCHOMOTOR HYPERACTIVITY [None]
  - LUNG CONSOLIDATION [None]
